FAERS Safety Report 7321152-X (Version None)
Quarter: 2011Q1

REPORT INFORMATION
  Report Type: 
  Country: None (occurrence: None)
  Receive Date: 20110228
  Receipt Date: 20110216
  Transmission Date: 20110831
  Serious: Yes (Other)
  Sender: FDA-Public Use
  Company Number: JP-BAYER-200914749BYL

PATIENT
  Age: 49 Year
  Sex: Male
  Weight: 62 kg

DRUGS (10)
  1. VANCOMYCIN HYDROCHLORIDE [Concomitant]
  2. GALENIC /PANIPENEM/BETAMIPRON/ [Concomitant]
     Indication: PSEUDOMONAS INFECTION
     Route: 041
  3. CIPROXAN-I.V. [Interacting]
     Indication: ABSCESS
  4. ALEVIATIN [Interacting]
     Dosage: 250 MG, BID
     Route: 042
  5. CEFTAZIDIME [Concomitant]
     Indication: PSEUDOMONAS INFECTION
     Route: 041
  6. ALEVIATIN [Interacting]
     Dosage: 250 MG, BID
     Route: 048
  7. CIPROXAN-I.V. [Suspect]
     Indication: PSEUDOMONAS INFECTION
     Dosage: 300 MG, BID
     Route: 041
  8. VANCOMYCIN HYDROCHLORIDE [Concomitant]
     Indication: PSEUDOMONAS INFECTION
     Dosage: 1 G, BID
     Route: 041
  9. CIPROXAN-I.V. [Interacting]
     Indication: STAPHYLOCOCCAL INFECTION
  10. ALEVIATIN [Interacting]
     Indication: CONVULSION
     Dosage: 300 MG, TID
     Route: 048

REACTIONS (2)
  - ANTICONVULSANT DRUG LEVEL DECREASED [None]
  - CONVULSION [None]
